FAERS Safety Report 16233605 (Version 1)
Quarter: 2019Q2

REPORT INFORMATION
  Report Type: Spontaneous
  Country: US (occurrence: US)
  Receive Date: 20190424
  Receipt Date: 20190424
  Transmission Date: 20190711
  Serious: No
  Sender: FDA-Public Use
  Company Number: US-BAYER-2019-082302

PATIENT
  Age: 82 Year
  Sex: Female
  Weight: 63.5 kg

DRUGS (4)
  1. OSTEO BI-FLEX EASE [Concomitant]
  2. LEVOTHYROXINE. [Concomitant]
     Active Substance: LEVOTHYROXINE
     Dosage: 44 MG, QD
  3. ALEVE [Suspect]
     Active Substance: NAPROXEN SODIUM
     Indication: ARTHRALGIA
     Dosage: 1 DF, BID
     Route: 048
     Dates: start: 20190420, end: 20190421
  4. OXYCODONE [Concomitant]
     Active Substance: OXYCODONE

REACTIONS (3)
  - Dizziness [Recovered/Resolved]
  - Balance disorder [Recovered/Resolved]
  - Restlessness [Recovered/Resolved]

NARRATIVE: CASE EVENT DATE: 20190421
